FAERS Safety Report 9905271 (Version 1)
Quarter: 2013Q2

REPORT INFORMATION
  Report Type: Spontaneous
  Country: US (occurrence: None)
  Receive Date: 20130305
  Receipt Date: 20130305
  Transmission Date: 20140414
  Serious: Yes (Other)
  Sender: FDA-Public Use
  Company Number: 163-21880-12030720

PATIENT
  Age: 82 Year
  Sex: Male
  Weight: 70.99 kg

DRUGS (7)
  1. REVLIMID [Suspect]
     Indication: PLASMA CELL MYELOMA
     Dosage: 25 MG, DAILY X 21/28 DAYS, PO
     Route: 048
     Dates: start: 201111, end: 20120306
  2. DEXAMETHASONE (DEXAMETHASONE) [Concomitant]
  3. ATENOLOL (ATENOLOL) [Suspect]
  4. COUMDIN (WARFARIN) (WARFARIN) [Concomitant]
  5. FLOMAX (TAMSULOSIN HYDROCHLORIDE) [Concomitant]
  6. ZOLPIDEM (ZOLPIDEM) [Concomitant]
  7. VITAMIN D3 (COLECALCIFEROL) [Concomitant]

REACTIONS (2)
  - White blood cell count decreased [None]
  - Neutrophil count decreased [None]
